FAERS Safety Report 6084515-9 (Version None)
Quarter: 2009Q1

REPORT INFORMATION
  Report Type: 
  Country: None (occurrence: None)
  Receive Date: 20090219
  Receipt Date: 20090210
  Transmission Date: 20090719
  Serious: Yes (Other)
  Sender: FDA-Public Use
  Company Number: JP-ABBOTT-09P-087-0502697-00

PATIENT
  Sex: Male
  Weight: 16 kg

DRUGS (4)
  1. CEFZON SUSPENSION [Suspect]
     Indication: BRONCHITIS
     Route: 048
     Dates: start: 20081128, end: 20081129
  2. MUCODYNE [Concomitant]
     Indication: DRUG USE FOR UNKNOWN INDICATION
     Dosage: DRY SYRUP
     Dates: start: 20080913
  3. ONON [Concomitant]
     Indication: DRUG USE FOR UNKNOWN INDICATION
     Dosage: DRY SYRUP
     Dates: start: 20080913
  4. FLUTIDE [Concomitant]
     Indication: DRUG USE FOR UNKNOWN INDICATION
     Route: 055
     Dates: start: 20071107

REACTIONS (1)
  - ABNORMAL BEHAVIOUR [None]
